FAERS Safety Report 24555834 (Version 1)
Quarter: 2024Q4

REPORT INFORMATION
  Report Type: Spontaneous
  Country: US (occurrence: None)
  Receive Date: 20241025
  Receipt Date: 20241025
  Transmission Date: 20250115
  Serious: Yes (Death)
  Sender: Public
  Company Number: None

PATIENT
  Age: 100 Year
  Sex: Female
  Weight: 45.36 kg

DRUGS (1)
  1. COLLAGENASE SANTYL [Suspect]
     Active Substance: COLLAGENASE CLOSTRIDIUM HISTOLYTICUM
     Indication: Ulcer
     Dosage: FREQUENCY : DAILY;?
     Route: 061

REACTIONS (1)
  - Death [None]

NARRATIVE: CASE EVENT DATE: 20241008
